FAERS Safety Report 24097265 (Version 3)
Quarter: 2025Q1

REPORT INFORMATION
  Report Type: Report from Study
  Country: US (occurrence: US)
  Receive Date: 20240716
  Receipt Date: 20250118
  Transmission Date: 20250408
  Serious: Yes (Hospitalization, Other)
  Sender: AMGEN
  Company Number: US-HORIZON THERAPEUTICS-HZN-2024-002967

PATIENT
  Age: 74 Year
  Sex: Female
  Weight: 41.723 kg

DRUGS (5)
  1. ACTIMMUNE [Suspect]
     Active Substance: INTERFERON GAMMA-1B
     Indication: Chronic granulomatous disease
     Route: 058
     Dates: start: 2010
  2. ACTIMMUNE [Suspect]
     Active Substance: INTERFERON GAMMA-1B
     Indication: Neutrophil function disorder
     Dosage: 0.25 MILLILITER, 3 TIMES/WK
     Route: 058
     Dates: start: 20130222
  3. ZYRTEC [Concomitant]
     Active Substance: CETIRIZINE HYDROCHLORIDE
  4. ITRACONAZOLE [Concomitant]
     Active Substance: ITRACONAZOLE
  5. METHENAMINE HIPPURATE [Concomitant]
     Active Substance: METHENAMINE HIPPURATE

REACTIONS (8)
  - Granuloma [Recovering/Resolving]
  - Blood potassium decreased [Unknown]
  - Diverticulitis [Recovering/Resolving]
  - Colonic abscess [Unknown]
  - Crohn^s disease [Unknown]
  - Illness [Unknown]
  - Asthenia [Recovering/Resolving]
  - Weight decreased [Unknown]

NARRATIVE: CASE EVENT DATE: 20150101
